FAERS Safety Report 8766244 (Version 2)
Quarter: 2013Q4

REPORT INFORMATION
  Report Type: Report from Study
  Country: JP (occurrence: JP)
  Receive Date: 20120904
  Receipt Date: 20131106
  Transmission Date: 20140711
  Serious: Yes (Hospitalization, Other)
  Sender: FDA-Public Use
  Company Number: JP-009507513-1208JPN011790

PATIENT
  Age: 65 Year
  Sex: Female
  Weight: 56 kg

DRUGS (21)
  1. PEGINTRON [Suspect]
     Indication: HEPATITIS C
     Dosage: 1.5 MICROGRAM PER KILOGRAM, UNK
     Route: 058
     Dates: start: 20120502, end: 20120529
  2. REBETOL CAPSULES 200MG [Suspect]
     Indication: HEPATITIS C
     Dosage: 600 MG, QD
     Route: 048
     Dates: start: 20120502, end: 20120507
  3. REBETOL CAPSULES 200MG [Suspect]
     Dosage: 400 MG, QD
     Route: 048
     Dates: start: 20120508, end: 20120521
  4. REBETOL CAPSULES 200MG [Suspect]
     Dosage: 200 MG, QD
     Route: 048
     Dates: start: 20120522, end: 20120529
  5. TELAVIC [Suspect]
     Indication: HEPATITIS C
     Dosage: 2250 MG, QD
     Route: 048
     Dates: start: 20120501, end: 20120529
  6. URSO [Concomitant]
     Indication: HEPATITIS C
     Dosage: 600 MG, QD
     Route: 048
  7. ESTRIEL [Concomitant]
     Dosage: 2 MG, QD
     Route: 048
  8. ZETIA [Concomitant]
     Dosage: 10 MG, QD
     Route: 048
  9. NU-LOTAN [Concomitant]
     Dosage: 25 MG, UNK
     Route: 048
  10. TAKEPRON [Concomitant]
     Dosage: 15 MG, QD
     Route: 048
  11. LENDORMIN [Concomitant]
     Dosage: 0.25 MG, QD
     Route: 048
  12. MAGMITT [Concomitant]
     Dosage: 1500 MG, QD
     Route: 048
  13. LOXONIN [Concomitant]
     Dosage: 60 MG, QD
     Route: 048
  14. ALLEGRA [Concomitant]
     Dosage: 120 MG, QD
     Route: 048
  15. ANTEBATE [Concomitant]
     Dosage: DAILY DOSE UNKNOWN
     Route: 061
     Dates: start: 20120504
  16. SOLDEM 3A [Concomitant]
     Dosage: 500 ML, QD
     Route: 051
     Dates: start: 20120505, end: 20120508
  17. LACTEC [Concomitant]
     Dosage: 500 ML, QD
     Route: 051
     Dates: start: 20120508, end: 20120529
  18. ZYLORIC [Concomitant]
     Dosage: 100 MG, QD
     Route: 048
     Dates: start: 20120508
  19. ALDACTONE A [Concomitant]
     Dosage: 25 MG, QD
     Dates: start: 20120605
  20. GASMOTIN [Concomitant]
     Indication: ENTEROCOLITIS
     Dosage: 15 MG, QD
     Route: 048
     Dates: start: 20120605
  21. GASMOTIN [Concomitant]
     Dosage: 15 MG, QD
     Route: 048
     Dates: start: 20120724

REACTIONS (3)
  - Herpes zoster [Recovering/Resolving]
  - Renal impairment [Not Recovered/Not Resolved]
  - Decreased appetite [Not Recovered/Not Resolved]
